FAERS Safety Report 10472488 (Version 1)
Quarter: 2014Q3

REPORT INFORMATION
  Report Type: Spontaneous
  Country: FR (occurrence: FR)
  Receive Date: 20140924
  Receipt Date: 20140924
  Transmission Date: 20150326
  Serious: Yes (Hospitalization)
  Sender: FDA-Public Use
  Company Number: FR-JNJFOC-20140920043

PATIENT
  Age: 47 Year
  Sex: Male

DRUGS (2)
  1. LAMALINE [Suspect]
     Active Substance: ACETAMINOPHEN\CAFFEINE\OPIUM
     Indication: OSTEOARTHRITIS
     Route: 048
     Dates: start: 20140701, end: 20140707
  2. IXPRIM [Suspect]
     Active Substance: ACETAMINOPHEN\TRAMADOL HYDROCHLORIDE
     Indication: OSTEOARTHRITIS
     Route: 048
     Dates: start: 20140701, end: 20140707

REACTIONS (1)
  - Brief psychotic disorder with marked stressors [Recovered/Resolved with Sequelae]

NARRATIVE: CASE EVENT DATE: 20140707
